FAERS Safety Report 10027767 (Version 1)
Quarter: 2014Q1

REPORT INFORMATION
  Report Type: Spontaneous
  Country: GB (occurrence: GB)
  Receive Date: 20140321
  Receipt Date: 20140321
  Transmission Date: 20141002
  Serious: Yes (Other)
  Sender: FDA-Public Use
  Company Number: GB-ROCHE-1368849

PATIENT
  Age: 32 Year
  Sex: Female
  Weight: 67.7 kg

DRUGS (7)
  1. XOLAIR [Suspect]
     Indication: ASTHMA
     Route: 058
  2. THEOPHYLLINE [Suspect]
     Indication: ASTHMA
     Route: 048
  3. FEXOFENADINE [Suspect]
     Indication: ASTHMA
     Route: 048
  4. SPIRIVA [Suspect]
     Indication: ASTHMA
     Route: 065
  5. SYMBICORT [Suspect]
     Indication: ASTHMA
     Route: 065
  6. MONTELUKAST [Suspect]
     Indication: PRODUCT USED FOR UNKNOWN INDICATION
     Route: 065
  7. ALENDRONIC ACID [Suspect]
     Indication: PRODUCT USED FOR UNKNOWN INDICATION
     Route: 065

REACTIONS (3)
  - Skin infection [Recovering/Resolving]
  - Haemorrhage [Recovered/Resolved]
  - Maternal exposure during pregnancy [Unknown]
